FAERS Safety Report 7910671-0 (Version None)
Quarter: 2011Q4

REPORT INFORMATION
  Report Type: 
  Country: None (occurrence: None)
  Receive Date: 20111111
  Receipt Date: 20111104
  Transmission Date: 20120403
  Serious: Yes (Other)
  Sender: FDA-Public Use
  Company Number: BR-ASTRAZENECA-2011SE67421

PATIENT
  Age: 49 Year
  Sex: Female

DRUGS (4)
  1. CRESTOR [Suspect]
     Route: 048
  2. ATACAND HCT [Suspect]
     Dosage: 16/12.5 MG
     Route: 048
  3. SYMBICORT [Suspect]
     Route: 055
  4. NEXIUM [Suspect]
     Route: 048

REACTIONS (1)
  - RENAL FAILURE [None]
